FAERS Safety Report 8773513 (Version 1)
Quarter: 2012Q4

REPORT INFORMATION
  Report Type: 
  Country: US (occurrence: US)
  Receive Date: 20120907
  Receipt Date: 20120907
  Transmission Date: 20130627
  Serious: Yes (Hospitalization)
  Sender: FDA-Public Use
  Company Number: US-GLAXOSMITHKLINE-A0992397A

PATIENT
  Age: 0 Year
  Sex: Female
  Weight: 3.4 kg

DRUGS (3)
  1. PAXIL CR [Suspect]
     Route: 064
  2. PRENATAL VITAMINS [Concomitant]
  3. IRON SUPPLEMENTS [Concomitant]
     Indication: ANAEMIA

REACTIONS (4)
  - Ventricular septal defect [Unknown]
  - Atrial septal defect [Unknown]
  - Pulmonary valve stenosis congenital [Unknown]
  - Foetal exposure during pregnancy [Unknown]
